FAERS Safety Report 11734447 (Version 2)
Quarter: 2015Q4

REPORT INFORMATION
  Report Type: Report from Study
  Country: BR (occurrence: BR)
  Receive Date: 20151113
  Receipt Date: 20151215
  Transmission Date: 20160304
  Serious: Yes (Other)
  Sender: FDA-Public Use
  Company Number: PHHY2015BR146787

PATIENT
  Age: 62 Year
  Sex: Male
  Weight: 64 kg

DRUGS (3)
  1. LANTUS [Concomitant]
     Active Substance: INSULIN GLARGINE
     Indication: PRODUCT USED FOR UNKNOWN INDICATION
     Dosage: 10 U, QD (1 YEAR AGO)
     Route: 058
  2. DIOVAN AMLO FIX [Suspect]
     Active Substance: AMLODIPINE\VALSARTAN
     Indication: HYPERTENSION
     Dosage: 1 TABLET (VALSARTAN 320 MG, AMLODIPINE 10 MG), QD
     Route: 048
     Dates: end: 201506
  3. DIOVAN HCT [Suspect]
     Active Substance: HYDROCHLOROTHIAZIDE\VALSARTAN
     Indication: HYPERTENSION
     Dosage: VALSARTAN 320 MG AND HYDROCHOLOTHIAZIDE 12.5 MG, QD
     Route: 048
     Dates: start: 201506

REACTIONS (11)
  - Hemiplegia [Not Recovered/Not Resolved]
  - Renal disorder [Recovering/Resolving]
  - Renal impairment [Recovering/Resolving]
  - Depression [Not Recovered/Not Resolved]
  - Gait disturbance [Not Recovered/Not Resolved]
  - Blood creatinine increased [Recovering/Resolving]
  - Decreased appetite [Recovering/Resolving]
  - Dyspnoea [Recovering/Resolving]
  - Blood pressure increased [Recovering/Resolving]
  - Ischaemic stroke [Not Recovered/Not Resolved]
  - Blood urea increased [Recovering/Resolving]

NARRATIVE: CASE EVENT DATE: 201403
